FAERS Safety Report 18112868 (Version 1)
Quarter: 2020Q3

REPORT INFORMATION
  Report Type: Spontaneous
  Country: US (occurrence: US)
  Receive Date: 20200804
  Receipt Date: 20200804
  Transmission Date: 20201103
  Serious: Yes (Hospitalization)
  Sender: FDA-Public Use
  Company Number: None

PATIENT
  Age: 4 Year
  Sex: Male
  Weight: 17 kg

DRUGS (1)
  1. KETAMINE IV 200MG/20ML [Suspect]
     Active Substance: KETAMINE
     Route: 042

REACTIONS (3)
  - Product preparation issue [None]
  - Accidental overdose [None]
  - Product size issue [None]

NARRATIVE: CASE EVENT DATE: 20200717
